FAERS Safety Report 7639230-4 (Version None)
Quarter: 2011Q3

REPORT INFORMATION
  Report Type: 
  Country: None (occurrence: None)
  Receive Date: 20110721
  Receipt Date: 20110712
  Transmission Date: 20111222
  Serious: Yes (Hospitalization, Other)
  Sender: FDA-Public Use
  Company Number: KV201100112

PATIENT
  Age: 66 Year
  Sex: Female

DRUGS (5)
  1. CANDESARTAN CILEXETIL [Concomitant]
  2. CILEXETIL (CILEXETIL) [Concomitant]
  3. ATENOLOL [Concomitant]
  4. GLICLAZIDE (GLICLAZIDE) [Concomitant]
  5. PREDNISOLONE [Suspect]
     Indication: POLYMYALGIA RHEUMATICA
     Dosage: 15 MG, QD
     Dates: start: 20070903

REACTIONS (10)
  - NAUSEA [None]
  - RHABDOMYOLYSIS [None]
  - PALPITATIONS [None]
  - HEADACHE [None]
  - PHAEOCHROMOCYTOMA CRISIS [None]
  - VOMITING [None]
  - HYPERHIDROSIS [None]
  - LEFT VENTRICULAR HYPERTROPHY [None]
  - CHILLS [None]
  - SINUS TACHYCARDIA [None]
